FAERS Safety Report 19489175 (Version 1)
Quarter: 2021Q3

REPORT INFORMATION
  Report Type: Spontaneous
  Country: DE (occurrence: DE)
  Receive Date: 20210703
  Receipt Date: 20210703
  Transmission Date: 20211014
  Serious: Yes (Hospitalization)
  Sender: FDA-Public Use
  Company Number: DE-ACCORD-230206

PATIENT
  Age: 82 Year
  Sex: Male

DRUGS (16)
  1. SIMVASTATIN. [Concomitant]
     Active Substance: SIMVASTATIN
     Dosage: 40 MG, 0?0?1?0, TABLETTEN
     Route: 048
  2. TORASEMIDE [Suspect]
     Active Substance: TORSEMIDE
     Indication: PRODUCT USED FOR UNKNOWN INDICATION
     Dosage: 10 MG, 1?1?0?0, TABLETTEN
     Route: 048
  3. MACROGOL/POTASSIUM CHLORIDE/SODIUM BICARBONATE/SODIUM CHLORIDE [Concomitant]
     Active Substance: POLYETHYLENE GLYCOL\POTASSIUM CHLORIDE\SODIUM BICARBONATE\SODIUM CHLORIDE
     Dosage: 10 MG, 1?0?0?0, POWDER TO MIX
     Route: 048
  4. TAMSULOSIN [Concomitant]
     Active Substance: TAMSULOSIN
     Dosage: 0.4 MG, 1?0?0?0, TABLETTEN
     Route: 048
  5. MELPERONE [Concomitant]
     Active Substance: MELPERONE
     Dosage: 25 MG, 0?0?0?2, TABLETTEN
     Route: 048
  6. RAMIPRIL. [Suspect]
     Active Substance: RAMIPRIL
     Indication: PRODUCT USED FOR UNKNOWN INDICATION
     Dosage: 2.5 MG, 1?0?0?0, TABLETS
     Route: 048
  7. SPIRONOLACTONE. [Suspect]
     Active Substance: SPIRONOLACTONE
     Indication: PRODUCT USED FOR UNKNOWN INDICATION
     Dosage: 50 MG, 1?0?0?0, TABLETS
     Route: 048
  8. METAMIZOLE SODIUM [Concomitant]
     Active Substance: METAMIZOLE SODIUM
     Dosage: 500 MG, 1?1?1?1, TABLETTEN
     Route: 048
  9. PANTOPRAZOLE [Concomitant]
     Active Substance: PANTOPRAZOLE
     Dosage: 40 MG, 0?0?1?0, TABLETTEN
     Route: 048
  10. RISPERIDONE. [Concomitant]
     Active Substance: RISPERIDONE
     Dosage: 1 MG, 0.5?0?1?0, TABLET
     Route: 048
  11. GLYCOPYRRONIUM [Concomitant]
     Active Substance: GLYCOPYRRONIUM
     Dosage: 63 /110 UG, 1?0?0?0, INHALATION POWDE
     Route: 055
  12. RISPERIDONE. [Concomitant]
     Active Substance: RISPERIDONE
     Dosage: 1 MG, BEI BEDARF, TABLETTEN
     Route: 048
  13. EDOXABAN [Concomitant]
     Active Substance: EDOXABAN TOSYLATE
     Dosage: 30 MG, 1?0?0?0, TABLETTEN
     Route: 048
  14. MELPERONE [Concomitant]
     Active Substance: MELPERONE
     Dosage: 25 MG, BEI BEDARF 1X, TABLETTEN
     Route: 048
  15. TILIDINE/TILIDINE HYDROCHLORIDE [Concomitant]
     Dosage: 8/100 MG, 1?0?1?0, TABLET
     Route: 048
  16. BENSERAZIDE HYDROCHLORIDE/LEVODOPA [Concomitant]
     Active Substance: BENSERAZIDE HYDROCHLORIDE\LEVODOPA
     Dosage: 12.5 / 50 MG, 1?0?1?0, TABLETS
     Route: 048

REACTIONS (6)
  - Electrolyte imbalance [Unknown]
  - Hypotension [Unknown]
  - Diarrhoea [Unknown]
  - Dehydration [Unknown]
  - General physical health deterioration [Unknown]
  - Renal impairment [Unknown]
